FAERS Safety Report 8804237 (Version 3)
Quarter: 2012Q4

REPORT INFORMATION
  Report Type: 
  Country: US (occurrence: US)
  Receive Date: 20120923
  Receipt Date: 20121231
  Transmission Date: 20130627
  Serious: No
  Sender: FDA-Public Use
  Company Number: US-BIOGENIDEC-2012BI038682

PATIENT
  Sex: Female

DRUGS (1)
  1. TYSABRI [Suspect]
     Indication: MULTIPLE SCLEROSIS
     Route: 042
     Dates: start: 20100625

REACTIONS (4)
  - Feeling cold [Recovered/Resolved]
  - Tooth infection [Recovered/Resolved]
  - Dental caries [Not Recovered/Not Resolved]
  - Nasopharyngitis [Recovered/Resolved]
